FAERS Safety Report 5636332-9 (Version None)
Quarter: 2008Q1

REPORT INFORMATION
  Report Type: 
  Country: None (occurrence: None)
  Receive Date: 20080225
  Receipt Date: 20080225
  Transmission Date: 20080703
  Serious: Yes (Other)
  Sender: FDA-Public Use
  Company Number: PHEH1995US03241

PATIENT
  Age: 56 Year
  Sex: Female
  Weight: 65.83 kg

DRUGS (3)
  1. SDZ HTF 919  VS. PLACEBO [Suspect]
     Indication: IRRITABLE BOWEL SYNDROME
     Dosage: 12 MG, BID
     Route: 048
     Dates: start: 19951025, end: 19951128
  2. PREMARIN [Concomitant]
     Indication: OESTROGEN DEFICIENCY
  3. IBUPROFEN [Concomitant]
     Indication: PAIN

REACTIONS (2)
  - BREAST CANCER [None]
  - SURGERY [None]
